FAERS Safety Report 6689886-8 (Version None)
Quarter: 2010Q2

REPORT INFORMATION
  Report Type: 
  Country: None (occurrence: None)
  Receive Date: 20100412
  Receipt Date: 20100203
  Transmission Date: 20101027
  Serious: No
  Sender: FDA-Public Use
  Company Number: 1000011652

PATIENT
  Age: 59 Year
  Sex: Male

DRUGS (3)
  1. BYSTOLIC [Suspect]
     Indication: HYPERTENSION
     Dosage: 10 MG (10 MG, 1 IN 1 D), ORAL
     Route: 048
     Dates: start: 20100101
  2. HYDROCHLOROTHIAZIDE [Concomitant]
  3. INSULIN [Concomitant]

REACTIONS (1)
  - INHIBITORY DRUG INTERACTION [None]
